FAERS Safety Report 4837246-4 (Version None)
Quarter: 2005Q4

REPORT INFORMATION
  Report Type: 
  Country: None (occurrence: None)
  Receive Date: 20051122
  Receipt Date: 20051111
  Transmission Date: 20060501
  Serious: Yes (Life-Threatening, Hospitalization, Other)
  Sender: FDA-Public Use
  Company Number: 200514543BCC

PATIENT
  Age: 62 Year
  Sex: Male
  Weight: 74.8435 kg

DRUGS (6)
  1. EXTRA STRENGTH BAYER GELCAPS (ACETYLSALICYLIC ACID) [Suspect]
     Indication: ARTHRITIS
     Dosage: 1000 MG, Q4HR, ORAL
     Route: 048
     Dates: start: 20041101
  2. UNSPECIFIED ANESTHETIC (ANAESTHETICS) [Suspect]
     Dates: start: 20050510
  3. ATENOLOL [Concomitant]
  4. PLAVIX [Concomitant]
  5. LESCOL [Concomitant]
  6. FOSAMAX [Concomitant]

REACTIONS (4)
  - CEREBROVASCULAR ACCIDENT [None]
  - COMA [None]
  - MYOCARDIAL INFARCTION [None]
  - OVERDOSE [None]
